FAERS Safety Report 4676562-6 (Version None)
Quarter: 2005Q2

REPORT INFORMATION
  Report Type: 
  Country: None (occurrence: None)
  Receive Date: 20050526
  Receipt Date: 20050512
  Transmission Date: 20051028
  Serious: Yes (Hospitalization)
  Sender: FDA-Public Use
  Company Number: CIO05008631

PATIENT
  Age: 74 Year
  Sex: Female

DRUGS (1)
  1. METAMUCIL-2 [Suspect]
     Dosage: 5 CAPSUL,  ORAL
     Route: 048
     Dates: end: 20050510

REACTIONS (7)
  - DYSPHAGIA [None]
  - DYSPNOEA [None]
  - FOREIGN BODY TRAUMA [None]
  - PHARMACEUTICAL PRODUCT COMPLAINT [None]
  - PHARYNGOLARYNGEAL PAIN [None]
  - SALIVARY HYPERSECRETION [None]
  - THROAT TIGHTNESS [None]
